FAERS Safety Report 8417194-3 (Version None)
Quarter: 2012Q2

REPORT INFORMATION
  Report Type: 
  Country: None (occurrence: None)
  Receive Date: 20120606
  Receipt Date: 20110914
  Transmission Date: 20120825
  Serious: Yes (Hospitalization, Other)
  Sender: FDA-Public Use
  Company Number: RS-ROCHE-1073381

PATIENT
  Sex: Male
  Weight: 54 kg

DRUGS (7)
  1. CIPROFLOXACIN [Concomitant]
     Route: 042
     Dates: start: 20071201
  2. CEFTRIAXON [Concomitant]
     Indication: RENAL TRANSPLANT
     Route: 042
     Dates: start: 20070628
  3. CELLCEPT [Suspect]
     Indication: RENAL TRANSPLANT
     Route: 048
     Dates: start: 20080625
  4. RANISAN [Concomitant]
     Indication: RENAL TRANSPLANT
     Route: 042
     Dates: start: 20070628
  5. IMIPENEM AND CILASTATIN SODIUM [Concomitant]
     Route: 042
     Dates: start: 20071001
  6. TACROLIMUS [Suspect]
     Indication: RENAL TRANSPLANT
     Route: 048
     Dates: start: 20070628
  7. PREDNISOLONE [Suspect]
     Indication: RENAL TRANSPLANT
     Route: 042
     Dates: start: 20070628

REACTIONS (6)
  - RENAL TRANSPLANT [None]
  - FACIAL PARESIS [None]
  - BRONCHOPNEUMONIA [None]
  - RENAL DISORDER [None]
  - MENINGITIS [None]
  - BRAIN ABSCESS [None]
